FAERS Safety Report 5621679-2 (Version None)
Quarter: 2008Q1

REPORT INFORMATION
  Report Type: 
  Country: None (occurrence: None)
  Receive Date: 20080211
  Receipt Date: 20080128
  Transmission Date: 20080703
  Serious: Yes (Hospitalization)
  Sender: FDA-Public Use
  Company Number: JP-GENENTECH-254425

PATIENT
  Age: 76 Year
  Sex: Female

DRUGS (7)
  1. RANIBIZUMAB [Suspect]
     Indication: MACULAR DEGENERATION
     Dosage: 500 A?G, UNKNOWN
     Route: 031
     Dates: start: 20060530
  2. NIVADIL [Concomitant]
     Indication: DRUG USE FOR UNKNOWN INDICATION
  3. TRICHLORMETHIAZIDE [Concomitant]
     Indication: DRUG USE FOR UNKNOWN INDICATION
  4. FLAVITAN [Concomitant]
     Indication: DRUG USE FOR UNKNOWN INDICATION
  5. POLARAMINE [Concomitant]
     Indication: DRUG USE FOR UNKNOWN INDICATION
  6. HALCION [Concomitant]
     Indication: DRUG USE FOR UNKNOWN INDICATION
  7. DIAZEPAM [Concomitant]
     Indication: DRUG USE FOR UNKNOWN INDICATION

REACTIONS (3)
  - ABSCESS [None]
  - DENTAL CARIES [None]
  - LOCAL SWELLING [None]
